FAERS Safety Report 5558030-2 (Version None)
Quarter: 2007Q4

REPORT INFORMATION
  Report Type: 
  Country: None (occurrence: None)
  Receive Date: 20071214
  Receipt Date: 20071122
  Transmission Date: 20080405
  Serious: Yes (Hospitalization)
  Sender: FDA-Public Use
  Company Number: GB-RANBAXY-2007RR-11671

PATIENT
  Age: 89 Year
  Sex: Male

DRUGS (11)
  1. FLUOXETINE [Suspect]
     Indication: DEPRESSION
     Dosage: 20 MG, UNK
     Route: 048
     Dates: end: 20060605
  2. FRUSEMIDE [Suspect]
     Indication: HYPERTENSION
     Dosage: 40 MG, UNK
     Route: 048
     Dates: end: 20060602
  3. FRUSEMIDE [Suspect]
     Indication: CARDIAC FAILURE
  4. DIGOXIN [Concomitant]
     Indication: ATRIAL FIBRILLATION
     Dosage: 62.5 UG, UNK
     Route: 048
  5. LACTULOSE [Concomitant]
  6. LANSOPRAZOLE 30 MG GASTRO-RESISTANT CAPSULES [Concomitant]
     Indication: DYSPEPSIA
     Dosage: 30 MG, UNK
     Route: 048
  7. PERINDOPRIL [Concomitant]
     Indication: HYPERTENSION
     Dosage: 4 MG, UNK
     Route: 048
  8. SENNA [Concomitant]
  9. SERETIDE [Concomitant]
  10. SIMVASTATIN [Concomitant]
     Indication: BLOOD CHOLESTEROL INCREASED
     Dosage: 40 MG, UNK
     Route: 048
  11. TIOTROPIUM BROMIDE [Concomitant]
     Dosage: UNK

REACTIONS (6)
  - ASTHENIA [None]
  - CONFUSIONAL STATE [None]
  - DYSPHAGIA [None]
  - HYPONATRAEMIA [None]
  - LETHARGY [None]
  - VOMITING [None]
